FAERS Safety Report 8895614 (Version 1)
Quarter: 2012Q4

REPORT INFORMATION
  Report Type: 
  Country: US (occurrence: US)
  Receive Date: 20121108
  Receipt Date: 20121108
  Transmission Date: 20130627
  Serious: No
  Sender: FDA-Public Use
  Company Number: US-BAYER-2012-116090

PATIENT
  Age: 69 Year
  Sex: Male
  Weight: 78.01 kg

DRUGS (7)
  1. ALEVE CAPLET/TABLET,MIDOL EXTENDED RELIEF CAPLET [Suspect]
     Indication: PAIN RELIEF
     Dosage: 1 UNK, UNK
     Route: 048
     Dates: start: 201209, end: 20121030
  2. SIMVASTATIN [Concomitant]
  3. LISINOPRIL [Concomitant]
  4. VITAMIN C [Concomitant]
  5. GLUCOSAMINE [Concomitant]
  6. BABY ASPIRIN [Concomitant]
  7. VITAMIN D3 [Concomitant]

REACTIONS (3)
  - Incorrect drug administration duration [None]
  - Musculoskeletal pain [Not Recovered/Not Resolved]
  - Insomnia [Not Recovered/Not Resolved]
